FAERS Safety Report 5454958-2 (Version None)
Quarter: 2007Q3

REPORT INFORMATION
  Report Type: 
  Country: None (occurrence: None)
  Receive Date: 20070917
  Receipt Date: 20070905
  Transmission Date: 20080115
  Serious: Yes (Other)
  Sender: FDA-Public Use
  Company Number: DE-PFIZER INC-2006151833

PATIENT
  Age: 77 Year
  Sex: Male

DRUGS (3)
  1. GABAPENTIN [Suspect]
  2. LYRICA [Suspect]
     Indication: DIABETIC NEUROPATHY
     Dosage: DAILY DOSE:450MG
     Route: 048
     Dates: start: 20060101, end: 20070101
  3. LYRICA [Suspect]
     Indication: POLYNEUROPATHY

REACTIONS (11)
  - BLOOD GLUCOSE ABNORMAL [None]
  - CONSTIPATION [None]
  - DIARRHOEA [None]
  - DIZZINESS [None]
  - DRY MOUTH [None]
  - DYSAESTHESIA [None]
  - FATIGUE [None]
  - MENTAL DISORDER [None]
  - MOTOR DYSFUNCTION [None]
  - PRURITUS [None]
  - WEIGHT INCREASED [None]
